FAERS Safety Report 15172680 (Version 1)
Quarter: 2018Q3

REPORT INFORMATION
  Report Type: Spontaneous
  Country: US (occurrence: US)
  Receive Date: 20180622
  Receipt Date: 20180622
  Transmission Date: 20181010
  Serious: No
  Sender: FDA-Public Use
  Company Number: None

PATIENT
  Sex: Female

DRUGS (1)
  1. BENLYSTA [Suspect]
     Active Substance: BELIMUMAB
     Indication: RHEUMATOID ARTHRITIS
     Route: 058
     Dates: start: 201803

REACTIONS (6)
  - Fatigue [None]
  - Oropharyngeal pain [None]
  - Throat irritation [None]
  - Myalgia [None]
  - Pain in extremity [None]
  - Asthenia [None]
